FAERS Safety Report 7055203 (Version 2)
Quarter: 2015Q2

REPORT INFORMATION
  Report Type: Spontaneous
  Country: CH (occurrence: CH)
  Receive Date: 20090720
  Receipt Date: 20150619
  Transmission Date: 20150821
  Serious: Yes (Hospitalization, Other)
  Sender: FDA-Public Use
  Company Number: CH-ELI_LILLY_AND_COMPANY-CH200907001640

PATIENT
  Age: 21 Year
  Sex: Male
  Weight: 97.5 kg

DRUGS (2)
  1. ZYPREXA [Suspect]
     Active Substance: OLANZAPINE
     Indication: PSYCHOTIC DISORDER
     Dosage: 20 MG, QD
     Route: 048
     Dates: start: 1998, end: 2009
  2. ZYPREXA [Suspect]
     Active Substance: OLANZAPINE
     Dosage: 30 MG, QD
     Route: 048
     Dates: end: 200905

REACTIONS (6)
  - Psychotic disorder [Unknown]
  - Overdose [Recovered/Resolved]
  - Dyskinesia [Unknown]
  - Weight increased [Unknown]
  - Psychogenic pain disorder [Unknown]
  - Overweight [Unknown]

NARRATIVE: CASE EVENT DATE: 1998
